FAERS Safety Report 13362097 (Version 1)
Quarter: 2017Q1

REPORT INFORMATION
  Report Type: Spontaneous
  Country: US (occurrence: US)
  Receive Date: 20170321
  Receipt Date: 20170321
  Transmission Date: 20170429
  Serious: No
  Sender: FDA-Public Use
  Company Number: None

PATIENT
  Age: 48 Year
  Sex: Female

DRUGS (1)
  1. COPAXONE [Suspect]
     Active Substance: GLATIRAMER ACETATE
     Indication: MULTIPLE SCLEROSIS
     Dosage: COPAXONE 3 X WEEK SQ
     Route: 058
     Dates: start: 20170313

REACTIONS (3)
  - Dizziness [None]
  - Blood pressure decreased [None]
  - Syncope [None]

NARRATIVE: CASE EVENT DATE: 20170320
